FAERS Safety Report 25076972 (Version 1)
Quarter: 2025Q1

REPORT INFORMATION
  Report Type: Spontaneous
  Country: US (occurrence: US)
  Receive Date: 20250314
  Receipt Date: 20250314
  Transmission Date: 20250409
  Serious: No
  Sender: STRIDES
  Company Number: US-STRIDES ARCOLAB LIMITED-2024SP016471

PATIENT
  Sex: Female

DRUGS (1)
  1. SODIUM SULFATE, POTASSIUM SULFATE, MAGNESIUM SULFATE [Suspect]
     Active Substance: MAGNESIUM SULFATE\POTASSIUM SULFATE\SODIUM SULFATE
     Indication: Product used for unknown indication
     Route: 048

REACTIONS (2)
  - Product use complaint [Unknown]
  - Wrong technique in product usage process [Unknown]
